FAERS Safety Report 13625565 (Version 3)
Quarter: 2017Q2

REPORT INFORMATION
  Report Type: Spontaneous
  Country: FR (occurrence: FR)
  Receive Date: 20170607
  Receipt Date: 20170630
  Transmission Date: 20170830
  Serious: Yes (Hospitalization)
  Sender: FDA-Public Use
  Company Number: FR-PFIZER INC-2017240707

PATIENT
  Age: 81 Year
  Sex: Male

DRUGS (9)
  1. LIPTRUZET [Concomitant]
     Active Substance: ATORVASTATIN CALCIUM\EZETIMIBE
     Dosage: 1 DF, 1X/DAY
     Route: 048
  2. ESIDREX [Suspect]
     Active Substance: HYDROCHLOROTHIAZIDE
     Indication: CARDIAC FAILURE
     Dosage: 1 DF, 2X/DAY
     Route: 048
     Dates: start: 201703
  3. COUMADINE [Concomitant]
     Active Substance: WARFARIN SODIUM
     Dosage: 1 DF, 1X/DAY
     Route: 048
  4. ALDACTONE [Suspect]
     Active Substance: SPIRONOLACTONE
     Indication: CARDIAC FAILURE
     Dosage: 1 DF, 1X/DAY
     Route: 048
     Dates: start: 201701
  5. LASILIX SPECIAL /00032601/ [Suspect]
     Active Substance: FUROSEMIDE
     Dosage: 1.5 DF, DAILY (ONE TABLET IN THE MORNING AND 0.5 TABLET AT NOON)
     Route: 048
     Dates: start: 201703
  6. KALEORID LP [Concomitant]
     Active Substance: POTASSIUM CHLORIDE
     Dosage: 1 DF, 3X/DAY
     Route: 048
  7. LASILIX SPECIAL /00032601/ [Suspect]
     Active Substance: FUROSEMIDE
     Indication: CARDIAC FAILURE
     Dosage: 0.75 DF, 1X/DAY
     Route: 048
     Dates: end: 201703
  8. IMOVANE [Concomitant]
     Active Substance: ZOPICLONE
     Dosage: 1 DF, 1X/DAY
     Route: 048
  9. ADENURIC [Concomitant]
     Active Substance: FEBUXOSTAT
     Dosage: 1 DF, 1X/DAY
     Route: 048

REACTIONS (5)
  - Weight decreased [Recovered/Resolved]
  - General physical health deterioration [Recovered/Resolved]
  - Dehydration [Recovered/Resolved]
  - Hyponatraemia [Recovered/Resolved]
  - Vomiting [Recovered/Resolved]

NARRATIVE: CASE EVENT DATE: 201703
